FAERS Safety Report 9405919 (Version 1)
Quarter: 2013Q3

REPORT INFORMATION
  Report Type: Spontaneous
  Country: GB (occurrence: GB)
  Receive Date: 20130717
  Receipt Date: 20130717
  Transmission Date: 20140515
  Serious: Yes (Other)
  Sender: FDA-Public Use
  Company Number: GB-TEVA-418957ISR

PATIENT
  Sex: Male

DRUGS (6)
  1. LANSOPRAZOLE [Suspect]
  2. EPILIM CHRONO [Suspect]
  3. PREGABALIN [Suspect]
  4. KAPAKE [Suspect]
     Dosage: 1500 MILLIGRAM DAILY;
  5. BUTRANS [Suspect]
     Route: 003
  6. ANTIBIOTICS NOS [Concomitant]
     Indication: GASTRIC INFECTION
     Dosage: JUST FINISHED TRIPLE COURSE OF ANTIBIOTICS FOR STOMACH LINING INFECTION.

REACTIONS (3)
  - Depressed mood [Unknown]
  - Suicidal ideation [Unknown]
  - Hypovitaminosis [Unknown]
